FAERS Safety Report 7014926-6 (Version None)
Quarter: 2010Q3

REPORT INFORMATION
  Report Type: 
  Country: None (occurrence: None)
  Receive Date: 20100927
  Receipt Date: 20090902
  Transmission Date: 20110219
  Serious: Yes (Hospitalization)
  Sender: FDA-Public Use
  Company Number: US-ASTRAZENECA-2009SE11460

PATIENT
  Age: 843 Month
  Sex: Female

DRUGS (3)
  1. ARIMIDEX [Suspect]
     Route: 048
     Dates: start: 20050501
  2. PRAVASTATIN [Concomitant]
  3. METOPROLOL TARTRATE [Concomitant]

REACTIONS (4)
  - BLINDNESS TRANSIENT [None]
  - BLOOD CHOLESTEROL INCREASED [None]
  - HOT FLUSH [None]
  - HYPERGLYCAEMIA [None]
